FAERS Safety Report 7954858-X (Version None)
Quarter: 2011Q4

REPORT INFORMATION
  Report Type: 
  Country: None (occurrence: None)
  Receive Date: 20111202
  Receipt Date: 20111123
  Transmission Date: 20120403
  Serious: Yes (Hospitalization)
  Sender: FDA-Public Use
  Company Number: US-PERRIGO-11US010473

PATIENT
  Sex: Male
  Weight: 54.875 kg

DRUGS (5)
  1. PROZAC [Concomitant]
     Indication: DEPRESSION
     Dosage: 40 MG, QD
     Route: 048
  2. ATENOLOL [Concomitant]
     Indication: CARDIAC DISORDER
     Dosage: 50 MG, BID
     Route: 048
  3. CLONAZEPAM [Concomitant]
     Indication: AGITATION
     Dosage: 1MG, TID, AS NEEDED
     Route: 048
  4. GABAPENTIN [Concomitant]
     Indication: FIBROMYALGIA
     Dosage: 600 MG, BID
     Route: 048
  5. IBUPROFEN [Suspect]
     Indication: PAIN
     Dosage: UNK
     Route: 048
     Dates: start: 20040101, end: 20111001

REACTIONS (5)
  - INCORRECT DRUG ADMINISTRATION DURATION [None]
  - INCORRECT DOSE ADMINISTERED [None]
  - WEIGHT DECREASED [None]
  - GASTROINTESTINAL ULCER HAEMORRHAGE [None]
  - RECTAL HAEMORRHAGE [None]
